FAERS Safety Report 16344404 (Version 4)
Quarter: 2019Q2

REPORT INFORMATION
  Report Type: Spontaneous
  Country: NL (occurrence: NL)
  Receive Date: 20190522
  Receipt Date: 20190530
  Transmission Date: 20190711
  Serious: Yes (Life-Threatening, Hospitalization, Other)
  Sender: FDA-Public Use
  Company Number: PHHY2019NL112310

PATIENT
  Age: 26 Year
  Sex: Male

DRUGS (7)
  1. EVEROLIMUS. [Suspect]
     Active Substance: EVEROLIMUS
     Indication: PROPHYLAXIS AGAINST TRANSPLANT REJECTION
  2. PREDNISONE. [Suspect]
     Active Substance: PREDNISONE
     Indication: RENAL TRANSPLANT
     Dosage: 10 MG, QD
     Route: 065
  3. EVEROLIMUS. [Suspect]
     Active Substance: EVEROLIMUS
     Indication: IMMUNOSUPPRESSANT DRUG THERAPY
  4. EVEROLIMUS. [Suspect]
     Active Substance: EVEROLIMUS
     Indication: RENAL TRANSPLANT
     Dosage: 3.25 MG, BID
     Route: 065
  5. TACROLIMUS. [Suspect]
     Active Substance: TACROLIMUS
     Indication: RENAL TRANSPLANT
     Dosage: 6 MG, BID
     Route: 065
  6. PREDNISONE. [Suspect]
     Active Substance: PREDNISONE
     Indication: IMMUNOSUPPRESSANT DRUG THERAPY
     Dosage: 80 MG, QD
     Route: 065
  7. TACROLIMUS. [Suspect]
     Active Substance: TACROLIMUS
     Indication: IMMUNOSUPPRESSANT DRUG THERAPY

REACTIONS (17)
  - Influenza like illness [Unknown]
  - Respiratory failure [Recovering/Resolving]
  - Vascular hyalinosis [Recovering/Resolving]
  - Renal impairment [Not Recovered/Not Resolved]
  - Pneumothorax [Recovering/Resolving]
  - Nephrocalcinosis [Recovering/Resolving]
  - Acute respiratory distress syndrome [Recovering/Resolving]
  - Toxicity to various agents [Recovering/Resolving]
  - Rhinorrhoea [Unknown]
  - Interstitial lung disease [Recovering/Resolving]
  - Renal failure [Recovering/Resolving]
  - Rhinovirus infection [Unknown]
  - Product use in unapproved indication [Unknown]
  - Paralysis [Unknown]
  - Pneumocystis jirovecii pneumonia [Recovering/Resolving]
  - Lung disorder [Recovering/Resolving]
  - Respiratory rate decreased [Recovering/Resolving]
